FAERS Safety Report 10510507 (Version 1)
Quarter: 2014Q4

REPORT INFORMATION
  Report Type: Spontaneous
  Country: DE (occurrence: DE)
  Receive Date: 20141010
  Receipt Date: 20141010
  Transmission Date: 20150528
  Serious: Yes (Death)
  Sender: FDA-Public Use
  Company Number: DE-SUN PHARMACEUTICAL INDUSTRIES LTD-2014SUN02270

PATIENT
  Age: 67 Year
  Sex: Female
  Weight: 74 kg

DRUGS (3)
  1. CISPLATIN. [Concomitant]
     Active Substance: CISPLATIN
     Dosage: 45 MG/M2, UNK
  2. GEMCITABINE SUN 200 MG PULVER ZUR HERSTELLUNG EINER INFUSIONSL?SUNG [Suspect]
     Active Substance: GEMCITABINE HYDROCHLORIDE
     Indication: PANCREATIC CARCINOMA
     Dosage: 830 MG/M2 I.E. 1500 MG INFUSION VOLUME: 100ML
     Route: 042
     Dates: start: 20140111
  3. GEMCITABINE SUN 200 MG PULVER ZUR HERSTELLUNG EINER INFUSIONSL?SUNG [Suspect]
     Active Substance: GEMCITABINE HYDROCHLORIDE
     Dosage: 830 MG/M2 I.E. 1500 MG, INFUSION VOLUME: 100ML
     Route: 042
     Dates: start: 20140224

REACTIONS (1)
  - Pulmonary embolism [Fatal]

NARRATIVE: CASE EVENT DATE: 20140330
